FAERS Safety Report 23734850 (Version 1)
Quarter: 2024Q2

REPORT INFORMATION
  Report Type: Report from Study
  Country: US (occurrence: US)
  Receive Date: 20240412
  Receipt Date: 20240412
  Transmission Date: 20240716
  Serious: Yes (Other)
  Sender: FDA-Public Use
  Company Number: US-ABBVIE-5715098

PATIENT
  Sex: Female

DRUGS (1)
  1. HUMIRA [Suspect]
     Active Substance: ADALIMUMAB
     Indication: Psoriatic arthropathy
     Route: 058
     Dates: start: 2020

REACTIONS (4)
  - Salivary gland disorder [Recovered/Resolved]
  - Upper respiratory tract infection [Recovered/Resolved]
  - Dry mouth [Not Recovered/Not Resolved]
  - Tooth fracture [Not Recovered/Not Resolved]
